FAERS Safety Report 18452720 (Version 2)
Quarter: 2020Q4

REPORT INFORMATION
  Report Type: Other
  Country: US (occurrence: US)
  Receive Date: 20201102
  Receipt Date: 20201208
  Transmission Date: 20210114
  Serious: No
  Sender: FDA-Public Use
  Company Number: US-AMAG PHARMACEUTICALS, INC.-AMAG202003557

PATIENT
  Age: 30 Year
  Sex: Female

DRUGS (1)
  1. MAKENA [Suspect]
     Active Substance: HYDROXYPROGESTERONE CAPROATE
     Indication: PREMATURE DELIVERY
     Route: 058
     Dates: start: 20200925, end: 20200929

REACTIONS (4)
  - Product dose omission issue [Unknown]
  - Injection site pruritus [Recovered/Resolved]
  - Gait inability [Unknown]
  - Injection site pain [Recovered/Resolved]
